FAERS Safety Report 6984861-8 (Version None)
Quarter: 2010Q3

REPORT INFORMATION
  Report Type: 
  Country: None (occurrence: None)
  Receive Date: 20100915
  Receipt Date: 20100907
  Transmission Date: 20110219
  Serious: Yes (Other)
  Sender: FDA-Public Use
  Company Number: US-JNJCH-2009029017

PATIENT
  Sex: Female
  Weight: 67.1 kg

DRUGS (2)
  1. LISTERINE ANTISEPTIC MOUTHWASH [Suspect]
     Indication: PRODUCT USED FOR UNKNOWN INDICATION
     Dosage: TEXT:AS DIRECTED TWICE A DAY
     Route: 048
  2. PROTONIX [Concomitant]
     Indication: GASTROOESOPHAGEAL REFLUX DISEASE
     Dosage: TEXT:1 TABLET ONCE DAILY
     Route: 048

REACTIONS (11)
  - ANXIETY [None]
  - COUGH [None]
  - DEPRESSION [None]
  - GASTROOESOPHAGEAL REFLUX DISEASE [None]
  - IMPAIRED WORK ABILITY [None]
  - INAPPROPRIATE SCHEDULE OF DRUG ADMINISTRATION [None]
  - LEUKOPLAKIA [None]
  - PARAKERATOSIS [None]
  - SKIN LESION [None]
  - SPEECH DISORDER [None]
  - SQUAMOUS CELL CARCINOMA [None]
